FAERS Safety Report 10153582 (Version 1)
Quarter: 2014Q2

REPORT INFORMATION
  Report Type: Report from Study
  Country: FR (occurrence: FR)
  Receive Date: 20140505
  Receipt Date: 20140505
  Transmission Date: 20141212
  Serious: Yes (Congenital Anomaly)
  Sender: FDA-Public Use
  Company Number: FR-009507513-1405FRA001851

PATIENT
  Sex: 0

DRUGS (1)
  1. CRIXIVAN [Suspect]
     Route: 064

REACTIONS (3)
  - Head deformity [Unknown]
  - Neck deformity [Unknown]
  - Foetal exposure during pregnancy [Unknown]
